FAERS Safety Report 24295713 (Version 1)
Quarter: 2024Q3

REPORT INFORMATION
  Report Type: Report from Study
  Country: IL (occurrence: IL)
  Receive Date: 20240908
  Receipt Date: 20240908
  Transmission Date: 20241017
  Serious: Yes (Hospitalization)
  Sender: ABBVIE
  Company Number: IL-ABBVIE-22K-082-4512627-00

PATIENT
  Age: 77 Year
  Sex: Male
  Weight: 91 kg

DRUGS (16)
  1. VENETOCLAX [Suspect]
     Active Substance: VENETOCLAX
     Indication: Chronic lymphocytic leukaemia
     Route: 048
     Dates: start: 20210712, end: 20210713
  2. ALLOPURINOL [Concomitant]
     Active Substance: ALLOPURINOL
     Indication: Chronic kidney disease
     Dates: start: 2011
  3. OBINUTUZUMAB [Suspect]
     Active Substance: OBINUTUZUMAB
     Indication: Chronic lymphocytic leukaemia
     Dosage: FREQUENCY TEXT: CYCLE NUMBER 1
     Route: 065
     Dates: start: 20210620, end: 20210620
  4. OBINUTUZUMAB [Suspect]
     Active Substance: OBINUTUZUMAB
     Indication: Chronic lymphocytic leukaemia
     Dosage: FREQUENCY TEXT: CYCLE NUMBER 4
     Route: 065
     Dates: start: 20210704, end: 20210704
  5. OBINUTUZUMAB [Suspect]
     Active Substance: OBINUTUZUMAB
     Indication: Chronic lymphocytic leukaemia
     Dosage: FREQUENCY TEXT: CYCLE NUMBER 2
     Route: 065
     Dates: start: 20210621, end: 20210621
  6. OBINUTUZUMAB [Suspect]
     Active Substance: OBINUTUZUMAB
     Indication: Chronic lymphocytic leukaemia
     Dosage: FREQUENCY TEXT: CYCLE NUMBER 3
     Route: 065
     Dates: start: 20210627, end: 20210627
  7. DUTASTERIDE [Concomitant]
     Active Substance: DUTASTERIDE
     Indication: Urosepsis
     Dates: start: 2016
  8. TAMSULOSIN [Concomitant]
     Active Substance: TAMSULOSIN
     Indication: Urosepsis
     Dates: start: 2016
  9. FUROSEMIDE [Concomitant]
     Active Substance: FUROSEMIDE
     Indication: Hypertension
     Dates: start: 2013
  10. INSULIN ASPART [Concomitant]
     Active Substance: INSULIN ASPART
     Indication: Diabetes mellitus
     Dates: start: 1986
  11. INSULIN GLARGINE [Concomitant]
     Active Substance: INSULIN GLARGINE
     Indication: Diabetes mellitus
     Dates: start: 1986
  12. OMEPRAZOLE [Concomitant]
     Active Substance: OMEPRAZOLE
     Indication: Dyspepsia
     Dates: start: 2018
  13. RAMIPRIL [Concomitant]
     Active Substance: RAMIPRIL
     Indication: Hypertension
     Dates: start: 1994
  14. LEVOTHYROXINE SODIUM [Concomitant]
     Active Substance: LEVOTHYROXINE SODIUM
     Indication: Hypothyroidism
     Dates: start: 2016
  15. ASPIRIN [Concomitant]
     Active Substance: ASPIRIN
     Indication: Cardiac failure congestive
     Dates: start: 201912
  16. PFIZER-BIONTECH COVID-19 VACCINE [Concomitant]
     Active Substance: TOZINAMERAN
     Indication: COVID-19 immunisation
     Dosage: TIME INTERVAL: 1 TOTAL
     Route: 030
     Dates: start: 20210919, end: 20210919

REACTIONS (2)
  - Asthenia [Recovered/Resolved]
  - Urosepsis [Recovered/Resolved]

NARRATIVE: CASE EVENT DATE: 20210712
